FAERS Safety Report 5732601-2 (Version None)
Quarter: 2008Q2

REPORT INFORMATION
  Report Type: 
  Country: None (occurrence: None)
  Receive Date: 20080507
  Receipt Date: 20080425
  Transmission Date: 20081010
  Serious: Yes (Other)
  Sender: FDA-Public Use
  Company Number: 2008BI009840

PATIENT
  Age: 49 Year
  Sex: Female

DRUGS (7)
  1. TYSABRI [Suspect]
     Indication: MULTIPLE SCLEROSIS
     Dosage: 300 MG; QM; IV
     Route: 042
     Dates: start: 20070112
  2. DEXEDRINE [Concomitant]
  3. MUTIVITAMINS [Concomitant]
  4. ANTACID TAB [Concomitant]
  5. TYLENOL [Concomitant]
  6. FISH OIL [Concomitant]
  7. SUPPLEMENTS (NOS) [Concomitant]

REACTIONS (1)
  - PANCREATITIS [None]
